FAERS Safety Report 24316643 (Version 1)
Quarter: 2024Q3

REPORT INFORMATION
  Report Type: Spontaneous
  Country: US (occurrence: US)
  Receive Date: 20240913
  Receipt Date: 20240913
  Transmission Date: 20241016
  Serious: Yes (Hospitalization)
  Sender: BRISTOL MYERS SQUIBB
  Company Number: US-BRISTOL-MYERS SQUIBB COMPANY-2024-141406

PATIENT
  Age: 77 Year
  Sex: Male
  Weight: 95.71 kg

DRUGS (13)
  1. REVLIMID [Suspect]
     Active Substance: LENALIDOMIDE
     Indication: Plasma cell myeloma
     Dosage: TAKE 1 CAPSULE 10 MG BY MOUTH ONCE DAILY FOR 21 ON 7 DAYS OFF
     Route: 048
     Dates: start: 20240723
  2. REVLIMID [Suspect]
     Active Substance: LENALIDOMIDE
     Route: 048
     Dates: start: 20240808, end: 20240827
  3. LENALIDOMIDE [Concomitant]
     Active Substance: LENALIDOMIDE
     Indication: Product used for unknown indication
     Dosage: TAKE 1 CAPSULE 10 MG BY MOUTH ONCE DAILY FOR 21 ON 7 DAYS OFF OF EACH 28 DAYS CYCLE, MFR ARE CIPLA A
     Route: 048
     Dates: start: 20240620
  4. LENALIDOMIDE [Concomitant]
     Active Substance: LENALIDOMIDE
     Dosage: TAKE 1 CAPSULE 15 MG BY MOUTH ONCE DAILY FOR 21 ON 7 DAYS OFF OF EACH 28 DAYS CYCLE
     Route: 048
     Dates: start: 20240722
  5. FERROUS SULFATE [Concomitant]
     Active Substance: FERROUS SULFATE
     Indication: Product used for unknown indication
     Dosage: 325 (64)
     Route: 048
     Dates: start: 20240626
  6. METOPROLOL SUCCINATE [Concomitant]
     Active Substance: METOPROLOL SUCCINATE
     Indication: Product used for unknown indication
     Dosage: ER
     Route: 048
     Dates: start: 20240626
  7. ALLOPURINOL [Concomitant]
     Active Substance: ALLOPURINOL
     Indication: Product used for unknown indication
     Route: 048
     Dates: start: 20240626
  8. SIMVASTATIN [Concomitant]
     Active Substance: SIMVASTATIN
     Indication: Product used for unknown indication
     Route: 048
     Dates: start: 20240626
  9. BACTRIM DS [Concomitant]
     Active Substance: SULFAMETHOXAZOLE\TRIMETHOPRIM
     Indication: Product used for unknown indication
     Dosage: 800-160 MG
     Dates: start: 20240626
  10. CALTRATE 600+D PLUS [Concomitant]
     Indication: Product used for unknown indication
     Dosage: MI 600-800
     Dates: start: 20240626
  11. XARELTO [Concomitant]
     Active Substance: RIVAROXABAN
     Indication: Product used for unknown indication
     Dates: start: 20240626
  12. ACYCLOVIR [Concomitant]
     Active Substance: ACYCLOVIR
     Indication: Product used for unknown indication
     Route: 048
     Dates: start: 20240626
  13. AMLODIPINE BESYLATE [Concomitant]
     Active Substance: AMLODIPINE BESYLATE
     Indication: Product used for unknown indication
     Dates: start: 20240626

REACTIONS (5)
  - Ulcer haemorrhage [Recovered/Resolved]
  - Confusional state [Recovered/Resolved]
  - Anaemia [Recovered/Resolved]
  - Amnesia [Recovered/Resolved]
  - Asthenia [Recovered/Resolved]

NARRATIVE: CASE EVENT DATE: 20240827
